FAERS Safety Report 23246594 (Version 1)
Quarter: 2023Q4

REPORT INFORMATION
  Report Type: Report from Study
  Country: US (occurrence: US)
  Receive Date: 20231130
  Receipt Date: 20231130
  Transmission Date: 20240109
  Serious: Yes (Life-Threatening)
  Sender: FDA-Public Use
  Company Number: US-UCBSA-2023048884

PATIENT
  Age: 65 Year
  Sex: Male

DRUGS (1)
  1. CERTOLIZUMAB PEGOL [Suspect]
     Active Substance: CERTOLIZUMAB PEGOL
     Indication: Ankylosing spondylitis
     Dosage: 400 MILLIGRAM, EV 2 WEEKS(QOW)
     Route: 058
     Dates: start: 20230928

REACTIONS (3)
  - Pulmonary thrombosis [Recovering/Resolving]
  - Dyspnoea [Recovering/Resolving]
  - Injection site rash [Recovered/Resolved]

NARRATIVE: CASE EVENT DATE: 20231001
